FAERS Safety Report 23353973 (Version 1)
Quarter: 2024Q1

REPORT INFORMATION
  Report Type: Report from Study
  Country: CO (occurrence: CO)
  Receive Date: 20240101
  Receipt Date: 20240101
  Transmission Date: 20240409
  Serious: Yes (Death, Hospitalization, Other)
  Sender: FDA-Public Use
  Company Number: CO-BAYER-2023A185301

PATIENT
  Sex: Male

DRUGS (1)
  1. EYLEA [Suspect]
     Active Substance: AFLIBERCEPT
     Indication: Age-related macular degeneration
     Dosage: 2MG INTRAVITREAL MONTHLY FOR 3 MONTHS, THEN EVERY 2 MONTHS THEREAFTER, 40 MG/ML, SOL. FOR INJ.
     Route: 031
     Dates: start: 20230518, end: 20230817

REACTIONS (2)
  - Death [Fatal]
  - Hospitalisation [Unknown]

NARRATIVE: CASE EVENT DATE: 20231224
